FAERS Safety Report 8092957-5 (Version None)
Quarter: 2012Q1

REPORT INFORMATION
  Report Type: 
  Country: None (occurrence: None)
  Receive Date: 20120131
  Receipt Date: 20120120
  Transmission Date: 20120608
  Serious: Yes (Life-Threatening)
  Sender: FDA-Public Use
  Company Number: FR-SANOFI-AVENTIS-2012SA002769

PATIENT
  Age: 81 Year
  Sex: Male

DRUGS (11)
  1. LASIX [Suspect]
     Route: 048
     Dates: end: 20110921
  2. IRBESARTAN + HYDROCHLOROTHIAZIDE [Suspect]
     Route: 048
     Dates: end: 20110921
  3. VITAMIN B1 TAB [Concomitant]
     Route: 048
     Dates: end: 20110921
  4. POTASSIUM CHLORIDE [Suspect]
     Route: 048
     Dates: end: 20110921
  5. EZETIMIBE [Concomitant]
     Route: 048
     Dates: end: 20110921
  6. LERCANIDIPINE [Suspect]
     Route: 048
     Dates: end: 20110921
  7. GLUCOPHAGE [Suspect]
     Route: 048
     Dates: end: 20110921
  8. ATORVASTATIN [Concomitant]
     Route: 048
     Dates: end: 20110921
  9. PLAVIX [Concomitant]
     Route: 048
     Dates: end: 20110921
  10. ALFUZOSIN HCL [Suspect]
     Route: 048
     Dates: end: 20110921
  11. VITAMIN B6 [Concomitant]
     Route: 048
     Dates: end: 20110921

REACTIONS (6)
  - RENAL FAILURE ACUTE [None]
  - DEHYDRATION [None]
  - OVERDOSE [None]
  - LACTIC ACIDOSIS [None]
  - HYPERKALAEMIA [None]
  - HYPOVOLAEMIC SHOCK [None]
